FAERS Safety Report 24615814 (Version 1)
Quarter: 2024Q4

REPORT INFORMATION
  Report Type: Spontaneous
  Country: US (occurrence: US)
  Receive Date: 20241113
  Receipt Date: 20241113
  Transmission Date: 20250114
  Serious: No
  Sender: GALDERMA
  Company Number: US-GALDERMA-US2023017231

PATIENT

DRUGS (2)
  1. AKLIEF [Suspect]
     Active Substance: TRIFAROTENE
     Indication: Product used for unknown indication
     Dosage: 1 DOSAGE FORM
     Route: 061
  2. HYDROQUINONE [Concomitant]
     Active Substance: HYDROQUINONE
     Indication: Product used for unknown indication
     Route: 065

REACTIONS (1)
  - Erythema [Unknown]
